FAERS Safety Report 8222215-7 (Version None)
Quarter: 2012Q1

REPORT INFORMATION
  Report Type: 
  Country: None (occurrence: None)
  Receive Date: 20120307
  Receipt Date: 20110606
  Transmission Date: 20120608
  Serious: Yes (Other)
  Sender: FDA-Public Use
  Company Number: PHHY2011US49958

PATIENT

DRUGS (3)
  1. SOMATOSTATIN (SOMATOSTATIN) [Concomitant]
  2. AFINITOR [Suspect]
  3. TEMODAR [Concomitant]

REACTIONS (1)
  - DISEASE PROGRESSION [None]
